FAERS Safety Report 12174331 (Version 2)
Quarter: 2018Q4

REPORT INFORMATION
  Report Type: Spontaneous
  Country: BE (occurrence: BE)
  Receive Date: 20160313
  Receipt Date: 20181004
  Transmission Date: 20190204
  Serious: Yes (Other)
  Sender: FDA-Public Use
  Company Number: BE-ROCHE-1723859

PATIENT
  Age: 66 Year
  Sex: Male

DRUGS (1)
  1. XOLAIR [Suspect]
     Active Substance: OMALIZUMAB
     Indication: ASTHMA
     Route: 058
     Dates: start: 2014

REACTIONS (2)
  - Factor VIII deficiency [Recovered/Resolved]
  - Acquired haemophilia [Recovered/Resolved]
